FAERS Safety Report 15576955 (Version 3)
Quarter: 2018Q4

REPORT INFORMATION
  Report Type: Report from Study
  Country: None (occurrence: US)
  Receive Date: 20181101
  Receipt Date: 20181217
  Transmission Date: 20190205
  Serious: Yes (Hospitalization, Other)
  Sender: FDA-Public Use
  Company Number: US-ABBVIE-18K-163-2541009-00

PATIENT
  Age: 66 Year
  Sex: Female
  Weight: 79 kg

DRUGS (5)
  1. CHOLESTEROL [Concomitant]
     Active Substance: CHOLESTEROL
     Indication: BLOOD PRESSURE MEASUREMENT
  2. LISINOPRIL. [Concomitant]
     Active Substance: LISINOPRIL
     Indication: BLOOD PRESSURE MEASUREMENT
  3. ATORVASTATIN [Concomitant]
     Active Substance: ATORVASTATIN
     Indication: BLOOD PRESSURE MEASUREMENT
  4. AZULFIDINE [Concomitant]
     Active Substance: SULFASALAZINE
     Indication: ARTHRITIS
  5. HUMIRA [Suspect]
     Active Substance: ADALIMUMAB
     Indication: RHEUMATOID ARTHRITIS
     Route: 058

REACTIONS (1)
  - Pulmonary thrombosis [Unknown]
